FAERS Safety Report 6784018-X (Version None)
Quarter: 2010Q2

REPORT INFORMATION
  Report Type: 
  Country: None (occurrence: None)
  Receive Date: 20100622
  Receipt Date: 20100616
  Transmission Date: 20101027
  Serious: Yes (Death, Hospitalization, Other)
  Sender: FDA-Public Use
  Company Number: LU-CELGENEUS-098-50794-10061833

PATIENT
  Sex: Female

DRUGS (2)
  1. VIDAZA [Suspect]
     Route: 065
     Dates: start: 20090601, end: 20090701
  2. CEFALOSPORINE [Concomitant]
     Indication: INFECTION
     Route: 065
     Dates: start: 20090701

REACTIONS (2)
  - BONE MARROW FAILURE [None]
  - SEPTIC SHOCK [None]
